FAERS Safety Report 8024425-0 (Version None)
Quarter: 2012Q1

REPORT INFORMATION
  Report Type: 
  Country: None (occurrence: None)
  Receive Date: 20120105
  Receipt Date: 20111221
  Transmission Date: 20120608
  Serious: Yes (Hospitalization)
  Sender: FDA-Public Use
  Company Number: PA-US-EMD SERONO, INC.-7104364

PATIENT
  Sex: Female
  Weight: 69.3 kg

DRUGS (3)
  1. CARBOCYSTEIN [Concomitant]
     Indication: PRODUCT USED FOR UNKNOWN INDICATION
  2. ANTIDEPRESSANTS [Concomitant]
     Indication: PRODUCT USED FOR UNKNOWN INDICATION
  3. REBIF [Suspect]
     Indication: MULTIPLE SCLEROSIS
     Route: 058

REACTIONS (2)
  - RHINITIS ALLERGIC [None]
  - MULTIPLE SCLEROSIS RELAPSE [None]
